FAERS Safety Report 23626156 (Version 1)
Quarter: 2024Q1

REPORT INFORMATION
  Report Type: Spontaneous
  Country: FR (occurrence: FR)
  Receive Date: 20240313
  Receipt Date: 20240313
  Transmission Date: 20240409
  Serious: Yes (Other)
  Sender: FDA-Public Use
  Company Number: FR-B.Braun Medical Inc.-2154294

PATIENT
  Age: 56 Year
  Sex: Female
  Weight: 78 kg

DRUGS (9)
  1. METRONIDAZOLE [Suspect]
     Active Substance: METRONIDAZOLE
     Route: 042
     Dates: start: 20240105, end: 20240113
  2. DAPTOMYCIN [Suspect]
     Active Substance: DAPTOMYCIN
  3. Furoseminde [Concomitant]
  4. CEFTRIAXONE [Concomitant]
     Active Substance: CEFTRIAXONE\CEFTRIAXONE SODIUM
  5. CALCIPARINE [Concomitant]
     Active Substance: HEPARIN CALCIUM
  6. ESOMEPRAZOLE. [Concomitant]
     Active Substance: ESOMEPRAZOLE MAGNESIUM
  7. GABAPENTIN [Concomitant]
     Active Substance: GABAPENTIN
  8. ALPRAZOLAM [Concomitant]
     Active Substance: ALPRAZOLAM
  9. PAROXETINE HYDROCHLORIDE [Concomitant]
     Active Substance: PAROXETINE HYDROCHLORIDE\PAROXETINE HYDROCHLORIDE ANHYDROUS

REACTIONS (1)
  - Rhabdomyolysis [Recovering/Resolving]
